FAERS Safety Report 22206153 (Version 1)
Quarter: 2023Q2

REPORT INFORMATION
  Report Type: Spontaneous
  Country: US (occurrence: None)
  Receive Date: 20230412
  Receipt Date: 20230412
  Transmission Date: 20230721
  Serious: No
  Sender: FDA-Public Use
  Company Number: None

PATIENT
  Age: 80 Year
  Sex: Male
  Weight: 90.54 kg

DRUGS (11)
  1. ABIRATERONE [Suspect]
     Active Substance: ABIRATERONE
     Indication: Prostate cancer
     Dosage: OTHER FREQUENCY : Q MORNING;?
     Route: 048
  2. ASPIRIN [Concomitant]
     Active Substance: ASPIRIN
  3. CLARTIN [Concomitant]
  4. LEXAPRO [Concomitant]
     Active Substance: ESCITALOPRAM OXALATE
  5. LORAZEPAM [Concomitant]
     Active Substance: LORAZEPAM
  6. MAGNESIUM [Concomitant]
     Active Substance: MAGNESIUM
  7. MELOXICAM [Concomitant]
     Active Substance: MELOXICAM
  8. PREDNISONE [Concomitant]
     Active Substance: PREDNISONE
  9. TAMSULOSIN [Concomitant]
     Active Substance: TAMSULOSIN
  10. TRAMADOL [Concomitant]
     Active Substance: TRAMADOL
  11. TYLENOL [Concomitant]
     Active Substance: ACETAMINOPHEN

REACTIONS (1)
  - Hospice care [None]
